FAERS Safety Report 8261438-8 (Version None)
Quarter: 2012Q2

REPORT INFORMATION
  Report Type: 
  Country: None (occurrence: None)
  Receive Date: 20120405
  Receipt Date: 20120402
  Transmission Date: 20120825
  Serious: Yes (Other)
  Sender: FDA-Public Use
  Company Number: US-PFIZER INC-2012050062

PATIENT
  Sex: Female
  Weight: 130 kg

DRUGS (2)
  1. CYTOMEL [Suspect]
     Indication: HYPOTHYROIDISM
     Dosage: 5 UG, 3X/DAY
     Dates: start: 20120210, end: 20120213
  2. MULTI-VITAMINS [Concomitant]
     Dosage: UNK

REACTIONS (4)
  - DYSPNOEA [None]
  - DELIRIUM [None]
  - HYPERSENSITIVITY [None]
  - THROAT TIGHTNESS [None]
